FAERS Safety Report 7764656-8 (Version None)
Quarter: 2011Q3

REPORT INFORMATION
  Report Type: 
  Country: None (occurrence: None)
  Receive Date: 20110921
  Receipt Date: 20110915
  Transmission Date: 20111222
  Serious: Yes (Death, Other)
  Sender: FDA-Public Use
  Company Number: PHHY2011BE82715

PATIENT
  Age: 61 Year
  Sex: Male

DRUGS (5)
  1. PREDNISOLONE [Concomitant]
     Dosage: 2 MG, UNK
  2. COLCHICINE [Suspect]
     Indication: PAIN
     Dosage: 0.5 MG, UNK
  3. ROSUVASTATIN [Concomitant]
     Dosage: 10 MG, UNK
  4. CYCLOSPORINE [Suspect]
     Dosage: 100 MG, BID
  5. COLCHICINE [Suspect]
     Indication: PERICARDITIS
     Dosage: 1 MG, OD

REACTIONS (16)
  - SHOCK [None]
  - TOXICITY TO VARIOUS AGENTS [None]
  - LEUKOPENIA [None]
  - RHABDOMYOLYSIS [None]
  - ACUTE HEPATIC FAILURE [None]
  - CHRONIC ALLOGRAFT NEPHROPATHY [None]
  - GASTRIC ULCER [None]
  - CONFUSIONAL STATE [None]
  - HYPOTENSION [None]
  - INTESTINAL ISCHAEMIA [None]
  - PERICARDIAL EFFUSION [None]
  - PERICARDITIS [None]
  - CHEST PAIN [None]
  - RIGHT VENTRICULAR DYSFUNCTION [None]
  - MULTI-ORGAN FAILURE [None]
  - DIARRHOEA [None]
